FAERS Safety Report 5644754-5 (Version None)
Quarter: 2008Q1

REPORT INFORMATION
  Report Type: 
  Country: None (occurrence: None)
  Receive Date: 20080229
  Receipt Date: 20070718
  Transmission Date: 20080703
  Serious: No
  Sender: FDA-Public Use
  Company Number: A0664836A

PATIENT
  Age: 72 Year
  Sex: Female

DRUGS (2)
  1. VALTREX [Suspect]
     Dosage: 250MG TWICE PER DAY
     Route: 048
     Dates: start: 20060101
  2. EFFEXOR [Concomitant]

REACTIONS (1)
  - DRUG INEFFECTIVE [None]
